FAERS Safety Report 7832571-7 (Version None)
Quarter: 2011Q4

REPORT INFORMATION
  Report Type: 
  Country: None (occurrence: None)
  Receive Date: 20111024
  Receipt Date: 20111012
  Transmission Date: 20120403
  Serious: Yes (Hospitalization, Other)
  Sender: FDA-Public Use
  Company Number: US-BIOGENIDEC-2009BI031212

PATIENT
  Age: 43 Year
  Sex: Female

DRUGS (3)
  1. AVONEX [Suspect]
     Indication: MULTIPLE SCLEROSIS
     Route: 030
     Dates: start: 20010725, end: 20080720
  2. AVONEX [Suspect]
     Route: 030
     Dates: start: 20090915, end: 20110601
  3. AVONEX [Suspect]
     Route: 030
     Dates: start: 20090601

REACTIONS (12)
  - BLINDNESS UNILATERAL [None]
  - MULTIPLE SCLEROSIS [None]
  - CONVULSION [None]
  - MULTIPLE SCLEROSIS RELAPSE [None]
  - HEPATIC ENZYME INCREASED [None]
  - HEAD INJURY [None]
  - LIVER INJURY [None]
  - CEREBROVASCULAR ACCIDENT [None]
  - ATRIAL SEPTAL DEFECT REPAIR [None]
  - INFLUENZA LIKE ILLNESS [None]
  - DYSKINESIA [None]
  - FALL [None]
